FAERS Safety Report 6098863-X (Version None)
Quarter: 2009Q1

REPORT INFORMATION
  Report Type: 
  Country: None (occurrence: None)
  Receive Date: 20090302
  Receipt Date: 20090224
  Transmission Date: 20090719
  Serious: Yes (Hospitalization)
  Sender: FDA-Public Use
  Company Number: B0532350A

PATIENT
  Age: 34 Year
  Sex: Female

DRUGS (4)
  1. SERETIDE [Suspect]
     Indication: ASTHMA
     Dosage: 2PUFF TWICE PER DAY
     Route: 055
     Dates: start: 20070101
  2. VENTOLIN [Suspect]
     Indication: ASTHMA
     Dosage: 200MCG AS REQUIRED
     Route: 055
     Dates: start: 19930101
  3. MONTELUKAST SODIUM [Suspect]
     Indication: ASTHMA
     Dosage: 10MG PER DAY
     Route: 065
  4. VENLAFAXINE HCL [Suspect]
     Indication: DEPRESSION
     Dosage: 75MG PER DAY
     Route: 065

REACTIONS (7)
  - ASTHMA [None]
  - CHEST DISCOMFORT [None]
  - COUGH [None]
  - DYSPNOEA [None]
  - LOWER RESPIRATORY TRACT INFECTION [None]
  - NASOPHARYNGITIS [None]
  - OBSTRUCTIVE AIRWAYS DISORDER [None]
